FAERS Safety Report 6229274-1 (Version None)
Quarter: 2009Q2

REPORT INFORMATION
  Report Type: 
  Country: None (occurrence: None)
  Receive Date: 20090615
  Receipt Date: 20090609
  Transmission Date: 20091009
  Serious: Yes (Death)
  Sender: FDA-Public Use
  Company Number: ES-BAYER-200921537GPV

PATIENT
  Age: 58 Year
  Sex: Male

DRUGS (1)
  1. MOXIFLOXACIN HCL [Suspect]
     Indication: BRONCHITIS
     Dosage: TOTAL DAILY DOSE: 400 MG

REACTIONS (5)
  - CHOLESTASIS [None]
  - CHROMATURIA [None]
  - FATIGUE [None]
  - HEPATITIS ACUTE [None]
  - JAUNDICE [None]
